FAERS Safety Report 4914040-7 (Version None)
Quarter: 2006Q1

REPORT INFORMATION
  Report Type: 
  Country: None (occurrence: None)
  Receive Date: 20060216
  Receipt Date: 20060205
  Transmission Date: 20060701
  Serious: Yes (Hospitalization)
  Sender: FDA-Public Use
  Company Number: US-ROCHE-435229

PATIENT
  Age: 48 Year
  Sex: Female
  Weight: 74.8 kg

DRUGS (7)
  1. PEGASYS [Suspect]
     Indication: HEPATITIS C
     Dosage: STRENGTH = 180 MCG/0.5 ML
     Route: 058
     Dates: start: 20051014, end: 20060121
  2. COPEGUS [Suspect]
     Indication: HEPATITIS C
     Route: 048
     Dates: start: 20051014, end: 20060121
  3. RESTORIL [Concomitant]
     Indication: INSOMNIA
     Dosage: DOSAGE REGIMEN = AT NIGHT AS NEEDED
     Route: 048
  4. ATIVAN [Concomitant]
     Indication: ANXIETY
     Route: 048
  5. FIORICET [Concomitant]
     Indication: HEADACHE
     Dosage: NOT MORE THAN 4 TABLETS DAILY
     Route: 065
  6. TYLENOL [Concomitant]
     Dosage: NO MORE THAN 900 MG DAILY
  7. ANTIDEPRESSANT NOS [Concomitant]

REACTIONS (12)
  - DEPRESSION [None]
  - DYSPNOEA [None]
  - HEADACHE [None]
  - INFLUENZA LIKE ILLNESS [None]
  - LIP ULCERATION [None]
  - LOSS OF CONSCIOUSNESS [None]
  - PHARMACEUTICAL PRODUCT COMPLAINT [None]
  - RASH [None]
  - VIRAL INFECTION [None]
  - VOMITING [None]
  - WEIGHT DECREASED [None]
  - WHITE BLOOD CELL COUNT ABNORMAL [None]
